FAERS Safety Report 14931371 (Version 2)
Quarter: 2018Q2

REPORT INFORMATION
  Report Type: Spontaneous
  Country: US (occurrence: US)
  Receive Date: 20180524
  Receipt Date: 20180530
  Transmission Date: 20180711
  Serious: No
  Sender: FDA-Public Use
  Company Number: US-UNITED THERAPEUTICS-UNT-2018-005461

PATIENT
  Sex: Male

DRUGS (2)
  1. ORENITRAM [Suspect]
     Active Substance: TREPROSTINIL
     Indication: PULMONARY ARTERIAL HYPERTENSION
     Dosage: 0.125 MG, TID
     Route: 048
     Dates: start: 20180407
  2. ORENITRAM [Suspect]
     Active Substance: TREPROSTINIL
     Dosage: 0.125 MG, BID
     Route: 048
     Dates: start: 20180408

REACTIONS (10)
  - Dizziness [Recovering/Resolving]
  - Asthenia [Unknown]
  - Rales [Unknown]
  - Dehydration [Unknown]
  - Oxygen saturation decreased [Not Recovered/Not Resolved]
  - Pallor [Unknown]
  - Hypovolaemia [Unknown]
  - Oedema [Not Recovered/Not Resolved]
  - Malaise [Unknown]
  - Weight increased [Unknown]

NARRATIVE: CASE EVENT DATE: 20180409
